FAERS Safety Report 9186306 (Version 3)
Quarter: 2013Q2

REPORT INFORMATION
  Report Type: Spontaneous
  Country: US (occurrence: US)
  Receive Date: 20130325
  Receipt Date: 20130620
  Transmission Date: 20140414
  Serious: Yes (Other)
  Sender: FDA-Public Use
  Company Number: US-BAYER-2013-036538

PATIENT
  Age: 61 Year
  Sex: Female

DRUGS (1)
  1. GADAVIST [Suspect]
     Indication: BLADDER CANCER
     Dosage: 9 ML, ONCE
     Dates: start: 20130311, end: 20130311

REACTIONS (2)
  - Seizure like phenomena [None]
  - Rash erythematous [None]
